FAERS Safety Report 4921185-4 (Version None)
Quarter: 2006Q1

REPORT INFORMATION
  Report Type: 
  Country: None (occurrence: None)
  Receive Date: 20060217
  Receipt Date: 20060202
  Transmission Date: 20060701
  Serious: Yes (Hospitalization, Other)
  Sender: FDA-Public Use
  Company Number: 2006-00115

PATIENT
  Age: 69 Year
  Sex: Male
  Weight: 70 kg

DRUGS (3)
  1. VELCADE [Suspect]
     Indication: MULTIPLE MYELOMA
     Dosage: 1.30 MG/M2, 2/WEEK, INTRAVENOUS
     Route: 042
     Dates: start: 20051006, end: 20051103
  2. ZOLEDRONIC ACID (ZOLEDRONIC ACID) [Concomitant]
  3. ALLOPURINOL [Concomitant]

REACTIONS (9)
  - ASTHENIA [None]
  - COORDINATION ABNORMAL [None]
  - METABOLIC ACIDOSIS [None]
  - PERIPHERAL SENSORY NEUROPATHY [None]
  - POLYDIPSIA [None]
  - RENAL FAILURE [None]
  - RENAL FAILURE ACUTE [None]
  - STUPOR [None]
  - TREMOR [None]
